FAERS Safety Report 13842960 (Version 12)
Quarter: 2020Q3

REPORT INFORMATION
  Report Type: Report from Study
  Country: US (occurrence: US)
  Receive Date: 20170808
  Receipt Date: 20200923
  Transmission Date: 20201104
  Serious: Yes (Hospitalization, Other)
  Sender: FDA-Public Use
  Company Number: US-ROCHE-1969438

PATIENT
  Age: 71 Year
  Sex: Female

DRUGS (14)
  1. SYNTHROID [Suspect]
     Active Substance: LEVOTHYROXINE SODIUM
     Indication: PRODUCT USED FOR UNKNOWN INDICATION
     Route: 065
  2. COMPAZINE [Concomitant]
     Active Substance: PROCHLORPERAZINE MALEATE
  3. PROZAC [Suspect]
     Active Substance: FLUOXETINE HYDROCHLORIDE
     Indication: PRODUCT USED FOR UNKNOWN INDICATION
     Route: 065
  4. ZOFRAN [Concomitant]
     Active Substance: ONDANSETRON HYDROCHLORIDE
  5. PEPCID [Concomitant]
     Active Substance: FAMOTIDINE
     Dosage: INDICATION: STOMACH PROTECTION WHILE TAKING STEROIDS
     Route: 048
  6. SENOKOT [Concomitant]
     Active Substance: SENNOSIDES
     Indication: CONSTIPATION PROPHYLAXIS
     Dosage: HOLD FOR LOOSE STOOLS/DIARRHEA
     Route: 048
  7. HYDROCORTISONE. [Concomitant]
     Active Substance: HYDROCORTISONE
     Route: 061
  8. PACLITAXEL. [Suspect]
     Active Substance: PACLITAXEL
     Indication: OVARIAN CANCER METASTATIC
     Dosage: TEMPORARILY INTERRUPTED AND RESTARTED.?ADMINISTERED ALSO ON: 03/OCT/2017, 24/OCT/2017, 08/AUG/2017
     Route: 042
     Dates: start: 20170718
  9. HYZAAR [Suspect]
     Active Substance: HYDROCHLOROTHIAZIDE\LOSARTAN POTASSIUM
     Indication: HYPERTENSION
     Route: 065
  10. WELLBUTRIN [Suspect]
     Active Substance: BUPROPION HYDROCHLORIDE
     Indication: PRODUCT USED FOR UNKNOWN INDICATION
     Route: 065
  11. EMACTUZUMAB. [Suspect]
     Active Substance: EMACTUZUMAB
     Indication: OVARIAN CANCER METASTATIC
     Dosage: TEMPORARILY INTERRUPTED AND RESTARTED. ?ADMINISTERED ALSO ON: 08/AUG/2017, 12/SEP/2017 AND 24/OCT/20
     Route: 042
     Dates: start: 20170718
  12. TYLENOL [Concomitant]
     Active Substance: ACETAMINOPHEN
  13. BEVACIZUMAB. [Suspect]
     Active Substance: BEVACIZUMAB
     Indication: OVARIAN CANCER METASTATIC
     Dosage: TEMPORARILY INTERRUPTED AND RESTARTED. ?ADMINISTERED ALSO ON: 26/SEP/2017, 24/OCT/2017, 08/AUG/2017
     Route: 042
     Dates: start: 20170718
  14. FOLIC ACID. [Concomitant]
     Active Substance: FOLIC ACID

REACTIONS (8)
  - Aspartate aminotransferase increased [Recovered/Resolved]
  - Pneumonitis [Recovered/Resolved]
  - Dyspnoea [Recovered/Resolved]
  - Blood creatine phosphokinase increased [Recovered/Resolved]
  - Dehydration [Recovered/Resolved]
  - Anaemia [Recovered/Resolved]
  - Blood lactate dehydrogenase increased [Recovered/Resolved]
  - Acute kidney injury [Recovered/Resolved]

NARRATIVE: CASE EVENT DATE: 20170725
